FAERS Safety Report 13349396 (Version 1)
Quarter: 2017Q1

REPORT INFORMATION
  Report Type: Other
  Country: IT (occurrence: IT)
  Receive Date: 20170320
  Receipt Date: 20170320
  Transmission Date: 20170428
  Serious: Yes (Other)
  Sender: FDA-Public Use
  Company Number: IT-AUROBINDO-AUR-APL-2014-04132

PATIENT

DRUGS (1)
  1. AMOXICILLINA TABLETS 1G [Suspect]
     Active Substance: AMOXICILLIN
     Indication: PRODUCT USED FOR UNKNOWN INDICATION
     Dosage: UNK UNK,UNK,
     Route: 065
     Dates: start: 20140306, end: 20140308

REACTIONS (2)
  - Dysentery [Unknown]
  - Rash [Unknown]

NARRATIVE: CASE EVENT DATE: 20140307
